FAERS Safety Report 7950858-4 (Version None)
Quarter: 2011Q4

REPORT INFORMATION
  Report Type: 
  Country: None (occurrence: None)
  Receive Date: 20111201
  Receipt Date: 20111122
  Transmission Date: 20120403
  Serious: Yes (Hospitalization)
  Sender: FDA-Public Use
  Company Number: US-BIOGENIDEC-2011BI044751

PATIENT
  Age: 44 Year
  Sex: Female

DRUGS (1)
  1. TYSABRI [Suspect]
     Indication: MULTIPLE SCLEROSIS
     Route: 042
     Dates: start: 20100501, end: 20111026

REACTIONS (5)
  - SELF-INJURIOUS IDEATION [None]
  - HEPATIC ENZYME ABNORMAL [None]
  - DEPRESSION [None]
  - MUSCLE SPASTICITY [None]
  - MULTIPLE SCLEROSIS [None]
